FAERS Safety Report 12214272 (Version 1)
Quarter: 2016Q1

REPORT INFORMATION
  Report Type: Spontaneous
  Country: US (occurrence: US)
  Receive Date: 20160328
  Receipt Date: 20160328
  Transmission Date: 20160526
  Serious: No
  Sender: FDA-Public Use
  Company Number: US-BAUSCH-BL-2015-025834

PATIENT
  Sex: Female

DRUGS (2)
  1. RETIN-A MICRO [Suspect]
     Active Substance: TRETINOIN
     Indication: SKIN WRINKLING
     Route: 061
     Dates: start: 201211, end: 201503
  2. TRETINOIN. [Suspect]
     Active Substance: TRETINOIN
     Indication: SKIN WRINKLING
     Dosage: DAILY
     Route: 061
     Dates: start: 201503

REACTIONS (4)
  - Off label use [Unknown]
  - Product quality issue [Unknown]
  - Skin exfoliation [Unknown]
  - Treatment noncompliance [Unknown]
